FAERS Safety Report 6213800-2 (Version None)
Quarter: 2009Q2

REPORT INFORMATION
  Report Type: 
  Country: None (occurrence: None)
  Receive Date: 20090602
  Receipt Date: 20090521
  Transmission Date: 20091009
  Serious: Yes (Other)
  Sender: FDA-Public Use
  Company Number: 2009AP002087

PATIENT
  Age: 9 Year
  Sex: Female

DRUGS (3)
  1. RANITIDINE [Suspect]
     Indication: GASTROINTESTINAL DISORDER
     Dosage: 5 ML; BID; PO, 5 ML; 1X; PO
     Route: 048
     Dates: start: 20090520, end: 20090520
  2. RANITIDINE [Suspect]
     Indication: VOMITING
     Dosage: 5 ML; BID; PO, 5 ML; 1X; PO
     Route: 048
     Dates: start: 20090520, end: 20090520
  3. CODEINE [Concomitant]

REACTIONS (8)
  - AGITATION [None]
  - AMNESIA [None]
  - CONFUSIONAL STATE [None]
  - DISORIENTATION [None]
  - EMOTIONAL DISORDER [None]
  - HALLUCINATION [None]
  - INSOMNIA [None]
  - RESTLESSNESS [None]
